FAERS Safety Report 10206974 (Version 2)
Quarter: 2014Q2

REPORT INFORMATION
  Report Type: Spontaneous
  Country: US (occurrence: US)
  Receive Date: 20140530
  Receipt Date: 20140625
  Transmission Date: 20141212
  Serious: No
  Sender: FDA-Public Use
  Company Number: US-BAYER-2014-080129

PATIENT
  Sex: Female

DRUGS (1)
  1. CLIMARA [Suspect]
     Indication: HORMONE REPLACEMENT THERAPY
     Dosage: WEEKLY PATCH

REACTIONS (4)
  - Skin lesion [Recovered/Resolved]
  - Pain of skin [Recovered/Resolved]
  - Blister [Recovered/Resolved]
  - Pain of skin [Recovered/Resolved]
